FAERS Safety Report 20665109 (Version 3)
Quarter: 2024Q4

REPORT INFORMATION
  Report Type: Spontaneous
  Country: US (occurrence: US)
  Receive Date: 20220401
  Receipt Date: 20241218
  Transmission Date: 20250115
  Serious: No
  Sender: PFIZER
  Company Number: US-PFIZER INC-2021477617

PATIENT
  Age: 79 Year
  Sex: Female
  Weight: 92.99 kg

DRUGS (1)
  1. IBRANCE [Suspect]
     Active Substance: PALBOCICLIB
     Indication: Breast cancer female
     Dosage: 125MG A DAY FOR 21 DAYS AND OFF FOR 7 DAYS EVERY 28 DAY CYCLE

REACTIONS (1)
  - Throat irritation [Unknown]
